FAERS Safety Report 5178924-X (Version None)
Quarter: 2006Q4

REPORT INFORMATION
  Report Type: 
  Country: None (occurrence: None)
  Receive Date: 20061213
  Receipt Date: 20061213
  Transmission Date: 20070319
  Serious: Yes (Disabling)
  Sender: FDA-Public Use
  Company Number: None

PATIENT
  Age: 36 Year
  Sex: Female
  Weight: 87.0906 kg

DRUGS (2)
  1. BACTRIM DS [Suspect]
     Indication: BACK PAIN
     Dosage: 1 TAB TWICE A DAY PO
     Route: 048
  2. BACTRIM DS [Suspect]
     Indication: URINARY TRACT INFECTION
     Dosage: 1 TAB TWICE A DAY PO
     Route: 048

REACTIONS (3)
  - NO THERAPEUTIC RESPONSE [None]
  - VAGINAL DISORDER [None]
  - VAGINAL OEDEMA [None]
